FAERS Safety Report 10364143 (Version 5)
Quarter: 2014Q4

REPORT INFORMATION
  Report Type: Spontaneous
  Country: BR (occurrence: BR)
  Receive Date: 20140806
  Receipt Date: 20141219
  Transmission Date: 20150528
  Serious: Yes (Disabling, Other)
  Sender: FDA-Public Use
  Company Number: BR-UCBSA-2014008097

PATIENT
  Age: 37 Year
  Sex: Female
  Weight: 72 kg

DRUGS (10)
  1. TECNOMET [Suspect]
     Active Substance: METHOTREXATE
     Indication: RHEUMATOID ARTHRITIS
     Dosage: 20 MG, WEEKLY (QW)
     Route: 048
     Dates: start: 2013, end: 2013
  2. CIMZIA [Suspect]
     Active Substance: CERTOLIZUMAB PEGOL
     Dosage: 200MG/ML INJECTION
     Route: 058
     Dates: start: 20140730, end: 2014
  3. PREDSIM [Concomitant]
     Active Substance: PREDNISOLONE
     Indication: PAIN
     Dosage: DAILY
     Route: 048
     Dates: start: 2013
  4. FOLIC ACID. [Concomitant]
     Active Substance: FOLIC ACID
     Indication: RHEUMATOID ARTHRITIS
     Dosage: DOSE: 2 DF
     Route: 048
  5. CIMZIA [Suspect]
     Active Substance: CERTOLIZUMAB PEGOL
     Dosage: 200MG/ML  EV 2 WEEKS(QOW)
     Route: 058
     Dates: start: 20141112
  6. DICLOFENAC [Concomitant]
     Active Substance: DICLOFENAC
     Indication: RHEUMATOID ARTHRITIS
     Dosage: UNK
  7. RIVOTRIL [Concomitant]
     Active Substance: CLONAZEPAM
     Indication: PRODUCT USED FOR UNKNOWN INDICATION
     Dosage: UNK
  8. CIMZIA [Suspect]
     Active Substance: CERTOLIZUMAB PEGOL
     Indication: RHEUMATOID ARTHRITIS
     Dosage: 200 MG/ML, INJECTION
     Route: 058
     Dates: start: 201406, end: 201406
  9. TECNOMET [Suspect]
     Active Substance: METHOTREXATE
     Dosage: 8 TAB ONCE A WEEK
     Route: 048
     Dates: start: 2013, end: 2013
  10. ALGINAC [Concomitant]
     Active Substance: CYANOCOBALAMIN\DICLOFENAC SODIUM\PYRIDOXINE HYDROCHLORIDE\THIAMINE MONONITRATE
     Indication: PAIN
     Dosage: UNK
     Route: 048
     Dates: start: 2013

REACTIONS (6)
  - Rheumatoid arthritis [Not Recovered/Not Resolved]
  - Nausea [Not Recovered/Not Resolved]
  - Hyperhidrosis [Unknown]
  - Gait disturbance [Recovered/Resolved]
  - Pain [Recovering/Resolving]
  - Drug dose omission [Unknown]

NARRATIVE: CASE EVENT DATE: 2014
